FAERS Safety Report 7060508-X (Version None)
Quarter: 2010Q4

REPORT INFORMATION
  Report Type: 
  Country: None (occurrence: None)
  Receive Date: 20101025
  Receipt Date: 20101014
  Transmission Date: 20110411
  Serious: Yes (Death)
  Sender: FDA-Public Use
  Company Number: PE-PFIZER INC-2010132129

PATIENT
  Age: 59 Year
  Sex: Female

DRUGS (1)
  1. ZELDOX [Suspect]
     Dosage: 60 MG, 2X/DAY
     Route: 048
     Dates: start: 20051215

REACTIONS (1)
  - DEATH [None]
